FAERS Safety Report 23772038 (Version 6)
Quarter: 2025Q3

REPORT INFORMATION
  Report Type: Report from Study
  Country: GB (occurrence: GB)
  Receive Date: 20240423
  Receipt Date: 20250922
  Transmission Date: 20251021
  Serious: Yes (Hospitalization)
  Sender: AMGEN
  Company Number: GB-Vifor (International) Inc.-VIT-2024-03259

PATIENT
  Age: 76 Year
  Sex: Male
  Weight: 59.4 kg

DRUGS (13)
  1. AVACOPAN [Suspect]
     Active Substance: AVACOPAN
     Indication: Anti-neutrophil cytoplasmic antibody positive vasculitis
     Dosage: LAST DOSE PRIOR TO ONSET OF SAE 28-FEB-2024
     Route: 048
     Dates: start: 20240227, end: 20240415
  2. AVACOPAN [Suspect]
     Active Substance: AVACOPAN
     Dosage: 30,MG,BID
     Route: 048
     Dates: start: 20240418
  3. CYCLOPHOSPHAMIDE [Concomitant]
     Active Substance: CYCLOPHOSPHAMIDE
     Indication: Anti-neutrophil cytoplasmic antibody positive vasculitis
     Dosage: 600 MILLIGRAM, Q3WK
     Route: 040
     Dates: start: 20240223
  4. COTRIMOXAZOLE [Concomitant]
     Active Substance: SULFAMETHOXAZOLE\TRIMETHOPRIM
     Indication: Prophylaxis
     Dosage: 480 MG, OD
     Route: 048
     Dates: start: 20240224
  5. COTRIMOXAZOLE [Concomitant]
     Active Substance: SULFAMETHOXAZOLE\TRIMETHOPRIM
     Indication: Upper respiratory tract infection
     Dosage: 160,MG,QD
     Route: 048
     Dates: start: 20240405, end: 20240407
  6. COTRIMOXAZOLE [Concomitant]
     Active Substance: SULFAMETHOXAZOLE\TRIMETHOPRIM
     Dosage: 480,MG,QD
     Route: 048
     Dates: start: 20240415, end: 20240429
  7. CALCIUM CARBONATE\CHOLECALCIFEROL [Concomitant]
     Active Substance: CALCIUM CARBONATE\CHOLECALCIFEROL
     Indication: Vitamin D deficiency
     Dosage: 750,MG,QD
     Route: 048
     Dates: start: 20240223
  8. AMLODIPINE [Concomitant]
     Active Substance: AMLODIPINE BESYLATE
     Indication: Hypertension
     Dosage: 10,MG,QD
     Route: 048
     Dates: start: 20201007
  9. DOXAZOSIN [Concomitant]
     Active Substance: DOXAZOSIN MESYLATE
     Indication: Hypertension
     Dosage: 2,MG,BID
     Route: 048
     Dates: start: 20240222
  10. OMEPRAZOLE [Concomitant]
     Active Substance: OMEPRAZOLE
     Indication: Prophylaxis
     Dosage: 10,MG,QD
     Route: 048
     Dates: start: 20161026, end: 20240517
  11. RANITIDINE HYDROCHLORIDE [Concomitant]
     Active Substance: RANITIDINE HYDROCHLORIDE
     Indication: Gastrooesophageal reflux disease
     Route: 048
     Dates: start: 20240227
  12. PREDNISOLONE [Concomitant]
     Active Substance: PREDNISOLONE
     Indication: Anti-neutrophil cytoplasmic antibody positive vasculitis
     Route: 048
     Dates: start: 20240228, end: 20240402
  13. SODIUM BICARBONATE [Concomitant]
     Active Substance: SODIUM BICARBONATE
     Indication: Chronic kidney disease
     Dosage: 500,MG,QD
     Route: 048
     Dates: start: 20240224

REACTIONS (4)
  - Upper respiratory tract infection [Recovered/Resolved]
  - Rash [Recovering/Resolving]
  - Haemoglobin decreased [Recovering/Resolving]
  - Vomiting [Recovering/Resolving]

NARRATIVE: CASE EVENT DATE: 20240405
